FAERS Safety Report 10041252 (Version 1)
Quarter: 2014Q1

REPORT INFORMATION
  Report Type: Spontaneous
  Country: IT (occurrence: None)
  Receive Date: 20140325
  Receipt Date: 20140325
  Transmission Date: 20141002
  Serious: Yes (Other)
  Sender: FDA-Public Use
  Company Number: 2245743

PATIENT
  Age: 80 Year
  Sex: Female
  Weight: 56 kg

DRUGS (9)
  1. IRINOTECAN HYDROCHLORIDE [Suspect]
     Indication: COLON CANCER
     Dosage: CYCLICAL?(NOT OTHERWISE SPECIFIED)
     Route: 042
     Dates: start: 20130130, end: 20130611
  2. FLUOROURACIL [Suspect]
     Indication: COLON CANCER
     Dosage: CYCLICAL
     Route: 040
     Dates: start: 20130130, end: 20130611
  3. ERBITUX [Suspect]
     Indication: COLON CANCER
     Dosage: CYCLICAL?(NOT OTHERWISE SPECIFIED)
     Route: 042
     Dates: start: 20130130, end: 20131211
  4. LEVOFOLINIC ACID [Concomitant]
  5. LEVEMIR [Concomitant]
  6. PLAUNAZIDE [Concomitant]
  7. LANOXIN [Concomitant]
  8. RYTMONORM [Concomitant]
  9. NOVORAPID [Concomitant]

REACTIONS (2)
  - Ophthalmic herpes zoster [None]
  - Herpes zoster [None]
